FAERS Safety Report 10223682 (Version 1)
Quarter: 2014Q2

REPORT INFORMATION
  Report Type: Spontaneous
  Country: KR (occurrence: None)
  Receive Date: 20140605
  Receipt Date: 20140605
  Transmission Date: 20141212
  Serious: Yes (Other)
  Sender: FDA-Public Use
  Company Number: KR-JNJFOC-20140517008

PATIENT
  Age: 70 Year
  Sex: Female

DRUGS (1)
  1. DACOGEN (DECITABINE) LYOPHILIZED POWDER [Suspect]
     Indication: PRODUCT USED FOR UNKNOWN INDICATION
     Route: 042

REACTIONS (1)
  - Cystitis haemorrhagic [None]
